FAERS Safety Report 9041268 (Version 1)
Quarter: 2013Q1

REPORT INFORMATION
  Report Type: Spontaneous
  Country: US (occurrence: None)
  Receive Date: 20130123
  Receipt Date: 20130123
  Transmission Date: 20140127
  Serious: Yes (Disabling)
  Sender: FDA-Public Use
  Company Number: None

PATIENT
  Sex: 0

DRUGS (1)
  1. LARIAM [Suspect]

REACTIONS (8)
  - Headache [None]
  - Fatigue [None]
  - Nausea [None]
  - Vomiting [None]
  - Amnesia [None]
  - Vestibular disorder [None]
  - Executive dysfunction [None]
  - Emotional disorder [None]
